FAERS Safety Report 8308109-7 (Version None)
Quarter: 2012Q2

REPORT INFORMATION
  Report Type: 
  Country: None (occurrence: None)
  Receive Date: 20120424
  Receipt Date: 20120416
  Transmission Date: 20120825
  Serious: Yes (Other)
  Sender: FDA-Public Use
  Company Number: DE-ROCHE-1035554

PATIENT
  Sex: Female
  Weight: 62 kg

DRUGS (5)
  1. HERCEPTIN [Suspect]
     Dates: end: 20111207
  2. EPIRUBICIN [Suspect]
     Indication: BREAST CANCER
     Route: 042
     Dates: start: 20110322, end: 20110708
  3. CYCLOPHOSPHAMIDE [Concomitant]
     Dates: start: 20110322, end: 20110708
  4. FLUOROURACIL [Concomitant]
     Dates: start: 20110322, end: 20110708
  5. HERCEPTIN [Suspect]
     Indication: BREAST CANCER
     Dosage: INITIAL DOSE
     Route: 042
     Dates: start: 20110727

REACTIONS (4)
  - DILATATION VENTRICULAR [None]
  - CARDIAC FAILURE [None]
  - OEDEMA [None]
  - DYSPNOEA [None]
